FAERS Safety Report 17889772 (Version 1)
Quarter: 2020Q2

REPORT INFORMATION
  Report Type: Spontaneous
  Country: US (occurrence: US)
  Receive Date: 20200612
  Receipt Date: 20200612
  Transmission Date: 20200714
  Serious: Yes (Life-Threatening, Hospitalization)
  Sender: FDA-Public Use
  Company Number: US-MYLANLABS-2020M1055300

PATIENT
  Age: 34 Year
  Sex: Female

DRUGS (2)
  1. DIGOXIN. [Suspect]
     Active Substance: DIGOXIN
     Indication: PRODUCT USED FOR UNKNOWN INDICATION
     Route: 037
  2. BUPIVACAINE. [Suspect]
     Active Substance: BUPIVACAINE
     Indication: SPINAL ANAESTHESIA
     Route: 065

REACTIONS (8)
  - Paralysis [Recovered/Resolved]
  - Maternal exposure during delivery [Recovered/Resolved]
  - Spinal cord oedema [Recovering/Resolving]
  - Normal newborn [Recovered/Resolved]
  - Mental status changes [Recovered/Resolved]
  - Incorrect route of product administration [Recovering/Resolving]
  - Coma [Recovering/Resolving]
  - Generalised tonic-clonic seizure [Recovering/Resolving]
